FAERS Safety Report 9107507 (Version 2)
Quarter: 2013Q1

REPORT INFORMATION
  Report Type: Spontaneous
  Country: BR (occurrence: BR)
  Receive Date: 20130221
  Receipt Date: 20130322
  Transmission Date: 20140127
  Serious: Yes (Hospitalization, Other)
  Sender: FDA-Public Use
  Company Number: PHHY2012BR111286

PATIENT
  Sex: Female
  Weight: 98 kg

DRUGS (8)
  1. DIOVAN [Suspect]
     Indication: BLOOD PRESSURE ABNORMAL
     Dosage: 160 MG, DAILY
  2. DIOVAN [Suspect]
     Dosage: 320 MG, DAILY
  3. OMEPRAZOL [Concomitant]
     Indication: ABDOMINAL DISCOMFORT
     Dosage: 2 DF, DAILY
     Route: 048
  4. ATENOLOL [Concomitant]
     Indication: HYPERTENSION
     Dosage: 2 DF, DAILY
     Route: 048
  5. LUTEINA [Concomitant]
     Indication: HYPERTENSION
     Dosage: 3 DF, QW
     Route: 048
  6. AAS INFANTILE [Concomitant]
     Indication: COAGULOPATHY
     Dosage: 1 DF, DAILY
     Route: 048
  7. SANDOSTATIN LAR [Concomitant]
     Indication: PITUITARY TUMOUR
     Dosage: UNK UKN, UNK
     Route: 030
  8. HIGROTON [Concomitant]
     Indication: FLUID RETENTION
     Dosage: 25 MG, DAILY
     Route: 048

REACTIONS (10)
  - Mouth haemorrhage [Recovered/Resolved]
  - Mouth ulceration [Recovered/Resolved]
  - Angina pectoris [Not Recovered/Not Resolved]
  - Coronary artery occlusion [Recovering/Resolving]
  - Diabetes mellitus [Recovering/Resolving]
  - Glaucoma [Recovering/Resolving]
  - Metabolic disorder [Recovered/Resolved]
  - Depression [Recovering/Resolving]
  - Varicose vein [Recovering/Resolving]
  - Blood pressure fluctuation [Recovering/Resolving]
